FAERS Safety Report 6588773-3 (Version None)
Quarter: 2010Q1

REPORT INFORMATION
  Report Type: 
  Country: None (occurrence: None)
  Receive Date: 20100218
  Receipt Date: 20100205
  Transmission Date: 20100710
  Serious: Yes (Hospitalization)
  Sender: FDA-Public Use
  Company Number: DE-WATSON-2010-01627

PATIENT

DRUGS (7)
  1. SIMVASTATIN [Suspect]
     Indication: HYPERLIPIDAEMIA
     Dosage: 20 MG, UNK
     Route: 048
     Dates: start: 20050101
  2. ASPIRIN [Suspect]
     Indication: CORONARY ARTERY DISEASE
     Dosage: 100 MG, UNK
     Route: 048
     Dates: start: 20080101, end: 20080908
  3. FALITHROM [Suspect]
     Indication: ATRIAL FIBRILLATION
     Dosage: 3 MG, UNK
     Route: 048
     Dates: start: 20080501, end: 20080904
  4. MANINIL [Concomitant]
     Indication: TYPE 2 DIABETES MELLITUS
     Dosage: 1 3/4 MG, UNK
     Route: 048
     Dates: start: 20050101
  5. PANTOZOL                           /01263202/ [Concomitant]
     Indication: PROPHYLAXIS AGAINST GASTROINTESTINAL ULCER
     Dosage: 40 MG, UNK
     Route: 048
     Dates: start: 20050101
  6. AMLODIPINE [Concomitant]
     Indication: HYPERTENSION
     Dosage: 5 MG, UNK
     Route: 048
     Dates: start: 20050101
  7. BELOC ZOK [Concomitant]
     Indication: HYPERTENSION
     Dosage: 23 3/4 MG, UNK
     Route: 048
     Dates: start: 20050101

REACTIONS (2)
  - DRUG INTERACTION [None]
  - HAEMATURIA [None]
